FAERS Safety Report 21948979 (Version 1)
Quarter: 2023Q1

REPORT INFORMATION
  Report Type: Spontaneous
  Country: BR (occurrence: BR)
  Receive Date: 20230203
  Receipt Date: 20230203
  Transmission Date: 20230418
  Serious: Yes (Death, Other)
  Sender: FDA-Public Use
  Company Number: BR-JNJFOC-20230202563

PATIENT
  Age: 17 Year

DRUGS (1)
  1. UPTRAVI [Suspect]
     Active Substance: SELEXIPAG
     Indication: Pulmonary arterial hypertension
     Route: 048

REACTIONS (3)
  - Transplantation complication [Fatal]
  - Lung transplant [Unknown]
  - Off label use [Unknown]

NARRATIVE: CASE EVENT DATE: 20230101
